FAERS Safety Report 9793952 (Version 2)
Quarter: 2014Q1

REPORT INFORMATION
  Report Type: Report from Study
  Country: AU (occurrence: AU)
  Receive Date: 20140102
  Receipt Date: 20140102
  Transmission Date: 20141002
  Serious: Yes (Life-Threatening, Other)
  Sender: FDA-Public Use
  Company Number: PHHY2013AU117341

PATIENT
  Age: 83 Year
  Sex: Female
  Weight: 59 kg

DRUGS (66)
  1. ACLASTA [Suspect]
     Indication: OSTEOPOROSIS
     Dosage: 5 MG/100ML YEARL
     Route: 042
     Dates: start: 20100602
  2. ACLASTA [Suspect]
     Dosage: 5 M/100ML YEARLY
     Route: 042
     Dates: start: 2011
  3. ACLASTA [Suspect]
     Dosage: 5 M/100ML YEARL
     Route: 042
     Dates: start: 20120925
  4. FISHAPHOS [Concomitant]
     Dosage: 1 CAPSULE, TWICE A DAY
  5. GLUCOSAMINE [Concomitant]
     Indication: ARTHROPATHY
     Dosage: 1 CAPSULE TWICE A DAY
  6. INTRAGAM [Concomitant]
     Dosage: UNK UKN, ONCE AMONTH
     Route: 041
  7. MAGNESIUM COMPOUNDS [Concomitant]
     Indication: MYALGIA
     Dosage: 1 TABLET, TWICE A DAY
  8. NASONEX [Concomitant]
     Dosage: 2 PUFFS IN MORNING FOR 1 MONTH
  9. OSTEVIT-D [Concomitant]
     Dosage: 1 TABLET IN THE MORNING
  10. STEMETIL ^AVENTIS PHARMA^ [Concomitant]
     Indication: DIZZINESS
     Dosage: 1 TABLET 3 TIMES A DAY AS REQUIRED
  11. STEMETIL ^AVENTIS PHARMA^ [Concomitant]
     Indication: NAUSEA
  12. CEFACLOR [Concomitant]
     Dosage: UNK UKN, ONE TWICE DAY
  13. CLARATYNE [Concomitant]
     Dosage: 1 BEFORE BED
  14. LOSEC                                   /CAN/ [Concomitant]
     Indication: DYSPEPSIA
     Dosage: 1 IN MORNING PRN
  15. LOSEC                                   /CAN/ [Concomitant]
     Indication: DYSPEPSIA
  16. NITROLINGUAL [Concomitant]
     Dosage: 1 SPRAY PRN
  17. ASTRIX [Concomitant]
     Dosage: 100 MG, QD
  18. OMEGA 3 [Concomitant]
     Dosage: 1 G, QD
  19. RHINOCORT (BECLOMETASONE DIPROPIONATE) [Concomitant]
     Dosage: 2 DF, BID
  20. VAGIFEM [Concomitant]
     Dosage: 1 PESSARY TWICE WEEKLY
  21. PNEUMOCOCCAL VACCINE [Concomitant]
     Dosage: UNK UKN, UNK
  22. INFLUENZA [Concomitant]
     Dosage: UNK UKN, UNK
  23. TETANUS ADSORBED [Concomitant]
     Dosage: UNK UKN, UNK
  24. PANAMAX [Concomitant]
     Indication: BACK PAIN
     Dosage: 2 TWICE DAILY
  25. AMIODARONE [Concomitant]
     Dosage: 300 MG, UNK
     Route: 042
     Dates: start: 20100627
  26. AMOXYCILLIN [Concomitant]
     Indication: NAUSEA
     Dosage: UNK UKN, UNK
     Dates: start: 1994
  27. AMOXYCILLIN [Concomitant]
     Indication: HEADACHE
  28. AUGMENTIN [Concomitant]
     Indication: NAUSEA
     Dosage: UNK UKN, UNK
     Dates: start: 1995
  29. AZITHROMYCIN [Concomitant]
     Dosage: 500 MG, QD
     Route: 042
     Dates: start: 20100623, end: 20100628
  30. KEFLOR [Concomitant]
     Dosage: UNK UKN, UNK
     Dates: start: 1997
  31. CEFTRIAXONE [Concomitant]
     Dosage: 1 G, QD
     Route: 042
     Dates: start: 20100623, end: 20100626
  32. CEFTRIAXONE [Concomitant]
     Dosage: 2 G, QD
     Dates: start: 20100627, end: 20100629
  33. KEFLEX//CEFALEXIN [Concomitant]
     Dosage: 250 MG, BID
     Dates: start: 201002
  34. KLACID                                  /IRE/ [Concomitant]
     Dosage: 2000(UNIT NOT PROVIDED)
  35. DIGOXIN [Concomitant]
     Dosage: 0.25 MG, AT NIGHT
     Dates: start: 20100628, end: 20100701
  36. DOXEPIN [Concomitant]
     Indication: NAUSEA
     Dosage: 100 MG, UNK
     Dates: start: 2004
  37. DOXEPIN [Concomitant]
     Indication: DIARRHOEA
  38. CLEXAN [Concomitant]
     Dosage: 20 MG, QD
  39. FLAGYL [Concomitant]
     Indication: DIARRHOEA
     Dosage: UNK UKN, UNK
     Dates: start: 1998
  40. FLAGYL [Concomitant]
     Indication: NAUSEA
  41. RULIDE [Concomitant]
     Indication: HEADACHE
     Dosage: 150 MG, BID
     Dates: start: 1995
  42. RULIDE [Concomitant]
     Indication: NAUSEA
     Dosage: UNK UKN, QD
     Dates: start: 20100629, end: 20100702
  43. SERTRALINE [Concomitant]
     Indication: NAUSEA
     Dosage: 50 MG, UNK
     Dates: start: 20100711, end: 20100715
  44. TRAMAL [Concomitant]
     Indication: VOMITING
     Dosage: UNK UKN, UNK
     Dates: start: 2002
  45. OCTAGAM [Concomitant]
     Dosage: 24 G, UNK
     Route: 042
     Dates: start: 20100716
  46. BLACKMORES BIO MAGNESIUM [Concomitant]
     Dosage: 1 DF, BID
  47. FLUVAX [Concomitant]
     Dosage: UNK UKN, UNK
     Dates: start: 19960319
  48. FLUVAX [Concomitant]
     Dosage: UNK UKN, UNK
     Dates: start: 19970312
  49. FLUVAX [Concomitant]
     Dosage: UNK UKN, UNK
     Dates: start: 19980317
  50. FLUVAX [Concomitant]
     Dosage: UNK
     Dates: start: 19980317
  51. FLUVAX [Concomitant]
     Dosage: UNK UKN, UNK
     Dates: start: 19990310
  52. FLUVAX [Concomitant]
     Dosage: UNK UKN, UNK
     Dates: start: 20000218
  53. FLUVAX [Concomitant]
     Dosage: UNK UKN, UNK
     Dates: start: 20010316
  54. FLUVAX [Concomitant]
     Dosage: UNK UKN, UNK
     Dates: start: 20020322
  55. FLUVAX [Concomitant]
     Dosage: UNK UKN, UNK
     Dates: start: 20040303
  56. FLUVAX [Concomitant]
     Dosage: UNK UKN, UNK
     Dates: start: 20050322
  57. FLUVAX [Concomitant]
     Dosage: UNK UKN, UNK
     Dates: start: 20090224
  58. FLUVAX [Concomitant]
     Dosage: UNK UKN, UNK
     Dates: start: 20091014
  59. FLUVAX [Concomitant]
     Dosage: UNK UKN, UNK
     Dates: start: 20100330
  60. FLUVAX [Concomitant]
     Dosage: UNK UKN, UNK
     Dates: start: 20110311
  61. ADT VACCINE [Concomitant]
     Dosage: UNK UKN, UNK
     Dates: start: 19960319
  62. ADT VACCINE [Concomitant]
     Dosage: UNK
     Dates: start: 19960901
  63. ADACEL [Concomitant]
     Dosage: UNK UKN, UNK
     Dates: start: 20090402
  64. VAXIGRIP [Concomitant]
     Dosage: UNK UKN, UNK
     Dates: start: 20060411
  65. VAXIGRIP [Concomitant]
     Dosage: UNK UKN, UNK
     Dates: start: 20070322
  66. VAXIGRIP [Concomitant]
     Dosage: UNK UKN, UNK
     Dates: start: 20080325

REACTIONS (34)
  - Pneumonia [Unknown]
  - Transitional cell carcinoma [Unknown]
  - Neoplasm malignant [Unknown]
  - Basal cell carcinoma [Unknown]
  - Carcinoma in situ [Unknown]
  - Renal failure chronic [Unknown]
  - Haemolysis [Unknown]
  - Malignant melanoma [Unknown]
  - Gamma-glutamyltransferase increased [Unknown]
  - Cells in urine [Recovered/Resolved]
  - Blood immunoglobulin A increased [Unknown]
  - Osteoarthritis [Unknown]
  - Bladder diverticulum [Unknown]
  - Hepatic cyst [Unknown]
  - Bursitis [Unknown]
  - Inflammation [Unknown]
  - Serum ferritin increased [Unknown]
  - Blood iron increased [Unknown]
  - Dermal cyst [Unknown]
  - Cardiomegaly [Unknown]
  - Immunodeficiency [Unknown]
  - Atrial flutter [Unknown]
  - Faecal incontinence [Recovering/Resolving]
  - Anal sphincter atony [Recovering/Resolving]
  - Diffuse alveolar damage [Unknown]
  - Blood pressure decreased [Unknown]
  - Legionella infection [Unknown]
  - Alpha 2 globulin increased [Unknown]
  - Leukopenia [Unknown]
  - Transferrin saturation increased [Unknown]
  - Gastritis atrophic [Unknown]
  - Acute respiratory distress syndrome [Unknown]
  - Pulmonary function test abnormal [Unknown]
  - Anaemia [Unknown]
